FAERS Safety Report 17356722 (Version 1)
Quarter: 2020Q1

REPORT INFORMATION
  Report Type: Spontaneous
  Country: US (occurrence: US)
  Receive Date: 20200131
  Receipt Date: 20200131
  Transmission Date: 20200409
  Serious: No
  Sender: FDA-Public Use
  Company Number: US-PERRIGO-19US006960

PATIENT
  Sex: Female
  Weight: 57.14 kg

DRUGS (1)
  1. HALOBETASOL PROPIONATE. [Suspect]
     Active Substance: HALOBETASOL PROPIONATE
     Indication: LICHEN SCLEROSUS
     Dosage: SMALL AMOUNT, BID
     Route: 061
     Dates: start: 2018, end: 201905

REACTIONS (2)
  - Expired product administered [Recovered/Resolved]
  - Incorrect product administration duration [Recovered/Resolved]

NARRATIVE: CASE EVENT DATE: 2018
